FAERS Safety Report 25807174 (Version 1)
Quarter: 2025Q3

REPORT INFORMATION
  Report Type: Spontaneous
  Country: AU (occurrence: AU)
  Receive Date: 20250916
  Receipt Date: 20250916
  Transmission Date: 20251021
  Serious: Yes (Other)
  Sender: MYLAN
  Company Number: AU-MYLANLABS-2025M1078259

PATIENT
  Age: 67 Year
  Sex: Male

DRUGS (12)
  1. METHOTREXATE [Suspect]
     Active Substance: METHOTREXATE
     Indication: Cardiac sarcoidosis
  2. METHOTREXATE [Suspect]
     Active Substance: METHOTREXATE
     Route: 065
  3. METHOTREXATE [Suspect]
     Active Substance: METHOTREXATE
     Route: 065
  4. METHOTREXATE [Suspect]
     Active Substance: METHOTREXATE
  5. AMIODARONE [Concomitant]
     Active Substance: AMIODARONE
     Indication: Atrial flutter
  6. AMIODARONE [Concomitant]
     Active Substance: AMIODARONE
     Route: 042
  7. AMIODARONE [Concomitant]
     Active Substance: AMIODARONE
     Route: 042
  8. AMIODARONE [Concomitant]
     Active Substance: AMIODARONE
  9. ISONIAZID [Concomitant]
     Active Substance: ISONIAZID
     Indication: Latent tuberculosis
  10. ISONIAZID [Concomitant]
     Active Substance: ISONIAZID
     Route: 065
  11. ISONIAZID [Concomitant]
     Active Substance: ISONIAZID
     Route: 065
  12. ISONIAZID [Concomitant]
     Active Substance: ISONIAZID

REACTIONS (4)
  - Sepsis [Unknown]
  - Enterovesical fistula [Unknown]
  - Drug ineffective for unapproved indication [Unknown]
  - Off label use [Unknown]
